FAERS Safety Report 11346568 (Version 1)
Quarter: 2015Q3

REPORT INFORMATION
  Report Type: Spontaneous
  Country: US (occurrence: US)
  Receive Date: 20150803
  Receipt Date: 20150803
  Transmission Date: 20151125
  Serious: No
  Sender: FDA-Public Use
  Company Number: US-ELI_LILLY_AND_COMPANY-US201011006323

PATIENT
  Sex: Female

DRUGS (2)
  1. ZYPREXA [Suspect]
     Active Substance: OLANZAPINE
     Indication: POSTPARTUM DEPRESSION
     Dosage: 10 MG, DAILY (1/D)
     Dates: start: 2009, end: 2009
  2. LAMICTAL [Concomitant]
     Active Substance: LAMOTRIGINE
     Indication: POSTPARTUM DEPRESSION
     Dates: start: 2009

REACTIONS (3)
  - Insomnia [Unknown]
  - Exposure during breast feeding [Recovered/Resolved]
  - Off label use [Recovered/Resolved]

NARRATIVE: CASE EVENT DATE: 2009
